FAERS Safety Report 9444196 (Version 1)
Quarter: 2013Q3

REPORT INFORMATION
  Report Type: Spontaneous
  Country: US (occurrence: US)
  Receive Date: 20130807
  Receipt Date: 20130807
  Transmission Date: 20140515
  Serious: No
  Sender: FDA-Public Use
  Company Number: US-009507513-1307USA014786

PATIENT
  Age: 34 Year
  Sex: Female
  Weight: 68.27 kg

DRUGS (2)
  1. NUVARING [Suspect]
     Indication: CONTRACEPTION
     Dosage: 0.120 MG/0.015 MG PER DAY/ THREE WEEKS IN, ONE WEEK OUT
     Route: 067
     Dates: start: 2010
  2. PEPCID [Concomitant]

REACTIONS (4)
  - Product quality issue [Unknown]
  - Device expulsion [Not Recovered/Not Resolved]
  - Vulvovaginal pain [Not Recovered/Not Resolved]
  - Vulvovaginal discomfort [Not Recovered/Not Resolved]
